FAERS Safety Report 10307133 (Version 8)
Quarter: 2015Q4

REPORT INFORMATION
  Report Type: Report from Study
  Country: JP (occurrence: JP)
  Receive Date: 20140716
  Receipt Date: 20151104
  Transmission Date: 20160304
  Serious: Yes (Hospitalization, Other)
  Sender: FDA-Public Use
  Company Number: JP-UCBSA-2014005557

PATIENT
  Age: 26 Year
  Sex: Female
  Weight: 52 kg

DRUGS (7)
  1. KEPPRA [Concomitant]
     Active Substance: LEVETIRACETAM
     Indication: EPILEPSY
     Dosage: 1500 MG, 2X/DAY (BID)
     Route: 048
     Dates: start: 20070330, end: 20140708
  2. MYSTAN [Concomitant]
     Active Substance: CLOBAZAM
     Indication: EPILEPSY
     Dosage: 1.5 G, ONCE DAILY (QD)
     Route: 048
     Dates: start: 20060119, end: 20140707
  3. LACOSAMIDE EP [Suspect]
     Active Substance: LACOSAMIDE
     Indication: EPILEPSY
     Dosage: 100 MG, 2X/DAY (BID)
     Route: 048
     Dates: start: 20131016, end: 20131217
  4. SELENICA-R [Concomitant]
     Active Substance: VALPROATE SODIUM
     Indication: EPILEPSY
     Dosage: 0.75 G, 2X/DAY (BID)
     Route: 048
     Dates: start: 20130216, end: 20140708
  5. LACOSAMIDE EP [Suspect]
     Active Substance: LACOSAMIDE
     Dosage: 200 MG, 2X/DAY (BID)
     Route: 048
     Dates: start: 20131218, end: 20140708
  6. LACOSAMIDE EP [Suspect]
     Active Substance: LACOSAMIDE
     Dosage: 200 MG, 2X/DAY (BID)
     Route: 048
     Dates: start: 20140711
  7. ALFAROL [Concomitant]
     Active Substance: ALFACALCIDOL
     Indication: OSTEOPOROSIS PROPHYLAXIS
     Dosage: 0.5 ?G, ONCE DAILY (QD)
     Route: 048
     Dates: start: 20100910

REACTIONS (3)
  - Peritonitis [Recovered/Resolved]
  - Foreign body [Recovered/Resolved]
  - Toxicity to various agents [Recovered/Resolved]

NARRATIVE: CASE EVENT DATE: 20140708
